FAERS Safety Report 18572246 (Version 1)
Quarter: 2020Q4

REPORT INFORMATION
  Report Type: Spontaneous
  Country: DE (occurrence: DE)
  Receive Date: 20201202
  Receipt Date: 20201202
  Transmission Date: 20210114
  Serious: Yes (Congenital Anomaly, Other)
  Sender: FDA-Public Use
  Company Number: DE-DEXPHARM-20201092

PATIENT
  Age: 1 Day
  Sex: Female
  Weight: 3.81 kg

DRUGS (2)
  1. VENLAFAXINE [Suspect]
     Active Substance: VENLAFAXINE HYDROCHLORIDE
     Indication: DEPRESSION
     Dosage: 150 [MG/D (BIS 37.5)]/ DOSAGE REDUCTION FROM 150 MG TO 37.5 MG/D STEP BY STEP
     Route: 064
     Dates: start: 20191102
  2. VENLAFAXINE [Suspect]
     Active Substance: VENLAFAXINE HYDROCHLORIDE
     Indication: DEPRESSION
     Dosage: DOSAGE REDUCTION FROM 150 MG TO 37.5 MG/D STEP BY STEP
     Route: 064
     Dates: end: 20200724

REACTIONS (1)
  - Foetal exposure during pregnancy [Unknown]
